FAERS Safety Report 11127361 (Version 6)
Quarter: 2016Q1

REPORT INFORMATION
  Report Type: Report from Study
  Country: US (occurrence: US)
  Receive Date: 20150521
  Receipt Date: 20160310
  Transmission Date: 20160525
  Serious: Yes (Other)
  Sender: FDA-Public Use
  Company Number: US-AMGEN-USASP2015048062

PATIENT
  Age: 84 Year
  Sex: Female

DRUGS (6)
  1. ENBREL [Suspect]
     Active Substance: ETANERCEPT
     Indication: RHEUMATOID ARTHRITIS
     Dosage: 50 MG, QWK
     Route: 058
     Dates: start: 2006
  2. VITAMIN C [Concomitant]
     Active Substance: ASCORBIC ACID
     Dosage: UNK
  3. AMLODIPINE [Concomitant]
     Active Substance: AMLODIPINE BESYLATE
     Dosage: UNK
  4. MVI                                /01825701/ [Concomitant]
     Active Substance: VITAMINS
     Dosage: UNK
  5. CALCIUM [Concomitant]
     Active Substance: CALCIUM
     Dosage: UNK
  6. OMEPRAZOLE. [Concomitant]
     Active Substance: OMEPRAZOLE
     Dosage: UNK

REACTIONS (15)
  - Rheumatoid arthritis [Recovered/Resolved]
  - Mobility decreased [Recovered/Resolved]
  - Wrong technique in product usage process [Unknown]
  - Squamous cell carcinoma [Recovered/Resolved]
  - Visual impairment [Recovered/Resolved]
  - Injection site pain [Unknown]
  - Sinusitis [Unknown]
  - Musculoskeletal stiffness [Recovered/Resolved]
  - Musculoskeletal disorder [Not Recovered/Not Resolved]
  - Arthralgia [Recovered/Resolved]
  - Condition aggravated [Recovered/Resolved]
  - Impaired self-care [Recovered/Resolved]
  - Inflammation [Recovered/Resolved]
  - Gait disturbance [Recovered/Resolved]
  - Neoplasm malignant [Recovered/Resolved]

NARRATIVE: CASE EVENT DATE: 2011
